FAERS Safety Report 21322635 (Version 3)
Quarter: 2022Q3

REPORT INFORMATION
  Report Type: Report from Study
  Country: CA (occurrence: CA)
  Receive Date: 20220912
  Receipt Date: 20220920
  Transmission Date: 20221027
  Serious: Yes (Hospitalization)
  Sender: FDA-Public Use
  Company Number: CA-NOVARTISPH-PHHY2014CA005179

PATIENT
  Age: 63 Year
  Sex: Male

DRUGS (9)
  1. SANDOSTATIN LAR DEPOT [Suspect]
     Active Substance: OCTREOTIDE ACETATE
     Indication: Acral overgrowth
     Dosage: 30 MG,  (EVERY 6 WEEKS)
     Route: 030
     Dates: start: 19981119, end: 20170131
  2. SANDOSTATIN LAR DEPOT [Suspect]
     Active Substance: OCTREOTIDE ACETATE
     Dosage: 30 MG, (EVERY 8 WEEKS)
     Route: 030
     Dates: start: 20120314, end: 20140114
  3. SANDOSTATIN LAR DEPOT [Suspect]
     Active Substance: OCTREOTIDE ACETATE
     Dosage: 20 MG,  (EVERY 4 WEEKS)
     Route: 030
     Dates: start: 20160425, end: 20160425
  4. SANDOSTATIN LAR DEPOT [Suspect]
     Active Substance: OCTREOTIDE ACETATE
     Dosage: 20 MG, (EVERY 6 WEEKS)
     Route: 030
     Dates: start: 20160522, end: 20170131
  5. SANDOSTATIN LAR DEPOT [Suspect]
     Active Substance: OCTREOTIDE ACETATE
     Dosage: 20 MG, EVERY 8 WEEKS
     Route: 030
     Dates: start: 20190524
  6. SANDOSTATIN LAR DEPOT [Suspect]
     Active Substance: OCTREOTIDE ACETATE
     Dosage: 20 MG (EVERY 12 WEEKS)
     Route: 030
     Dates: start: 20191205
  7. SANDOSTATIN LAR DEPOT [Suspect]
     Active Substance: OCTREOTIDE ACETATE
     Dosage: 20 MG (EVERY 12 WEEKS)
     Route: 030
  8. ASPIRIN [Concomitant]
     Active Substance: ASPIRIN
     Indication: Product used for unknown indication
     Dosage: UNK
     Route: 048
  9. ACETAMINOPHEN\OXYCODONE HYDROCHLORIDE [Concomitant]
     Active Substance: ACETAMINOPHEN\OXYCODONE HYDROCHLORIDE
     Indication: Product used for unknown indication
     Dosage: 1 DF, TID (5MG/325MG)
     Route: 048

REACTIONS (14)
  - Accident [Unknown]
  - Gait disturbance [Unknown]
  - Dysstasia [Unknown]
  - Blood pressure systolic increased [Unknown]
  - Fall [Unknown]
  - Limb injury [Unknown]
  - Arthralgia [Unknown]
  - Mobility decreased [Recovering/Resolving]
  - Pain in extremity [Unknown]
  - Back injury [Unknown]
  - Acrochordon [Unknown]
  - Heart rate decreased [Unknown]
  - Inappropriate schedule of product administration [Unknown]
  - Product dose omission issue [Unknown]

NARRATIVE: CASE EVENT DATE: 20140114
